FAERS Safety Report 13155393 (Version 1)
Quarter: 2017Q1

REPORT INFORMATION
  Report Type: Spontaneous
  Country: US (occurrence: US)
  Receive Date: 20170126
  Receipt Date: 20170126
  Transmission Date: 20170428
  Serious: Yes (Hospitalization)
  Sender: FDA-Public Use
  Company Number: US-RARE DISEASE THERAPEUTICS, INC.-1062393

PATIENT
  Age: 57 Year
  Sex: Female
  Weight: 63.5 kg

DRUGS (11)
  1. VITAMIN C [Concomitant]
     Active Substance: ASCORBIC ACID
  2. LIPITOR [Concomitant]
     Active Substance: ATORVASTATIN CALCIUM
  3. AGGRENOX [Concomitant]
     Active Substance: ASPIRIN\DIPYRIDAMOLE
  4. SINGULAIR [Concomitant]
     Active Substance: MONTELUKAST SODIUM
  5. MULTIVITAMIN [Concomitant]
     Active Substance: VITAMINS
  6. FOLIC ACID. [Concomitant]
     Active Substance: FOLIC ACID
  7. PROBIOTICS [Concomitant]
     Active Substance: PROBIOTICS NOS
  8. DEMEROL [Concomitant]
     Active Substance: MEPERIDINE HYDROCHLORIDE
  9. CLARITIN [Concomitant]
     Active Substance: LORATADINE
  10. CALCIUM MAGNESIUM WITH VITAMIN D3 [Concomitant]
  11. CYSTADANE [Suspect]
     Active Substance: BETAINE
     Indication: HOMOCYSTINURIA
     Dates: start: 20150326

REACTIONS (3)
  - Dyspnoea [Recovered/Resolved]
  - Underdose [Unknown]
  - Cough [Recovered/Resolved]

NARRATIVE: CASE EVENT DATE: 20150326
